FAERS Safety Report 18477227 (Version 1)
Quarter: 2020Q4

REPORT INFORMATION
  Report Type: Spontaneous
  Country: GB (occurrence: GB)
  Receive Date: 20201107
  Receipt Date: 20201107
  Transmission Date: 20210114
  Serious: Yes (Other)
  Sender: FDA-Public Use
  Company Number: GB-TEVA-2020-GB-1844999

PATIENT
  Age: 63 Year
  Sex: Female
  Weight: 79 kg

DRUGS (16)
  1. PARACETAMOL [Concomitant]
     Active Substance: ACETAMINOPHEN
  2. VOLTAROL EMULGEL P [Concomitant]
     Active Substance: DICLOFENAC DIETHYLAMINE
  3. LONGTEC [Concomitant]
     Active Substance: OXYCODONE HYDROCHLORIDE
  4. ATORVASTATIN [Concomitant]
     Active Substance: ATORVASTATIN
  5. PROCHLORPERAZINE. [Concomitant]
     Active Substance: PROCHLORPERAZINE
  6. DULOXETINE HYDROCHLORIDE. [Suspect]
     Active Substance: DULOXETINE HYDROCHLORIDE
     Indication: NEURALGIA
     Dosage: 30 MG
     Route: 048
     Dates: start: 20200915, end: 20201005
  7. SHORTEC [Concomitant]
     Active Substance: OXYCODONE HYDROCHLORIDE
  8. PREGABALIN. [Concomitant]
     Active Substance: PREGABALIN
  9. LAXIDO [Concomitant]
     Active Substance: POLYETHYLENE GLYCOL 3350\POTASSIUM CHLORIDE\SODIUM BICARBONATE\SODIUM CHLORIDE
  10. FOSTAIR [Concomitant]
     Active Substance: BECLOMETHASONE\FORMOTEROL
  11. RELVAR ELLIPTA [Concomitant]
     Active Substance: FLUTICASONE FUROATE\VILANTEROL TRIFENATATE
  12. ZOPICLONE [Concomitant]
     Active Substance: ZOPICLONE
  13. EPILIM [Concomitant]
     Active Substance: VALPROATE SODIUM
  14. PREDNISOLONE. [Concomitant]
     Active Substance: PREDNISOLONE
  15. BUSCOPAN [Concomitant]
     Active Substance: BUTYLSCOPOLAMINE BROMIDE
  16. ESOMEPRAZOLE. [Concomitant]
     Active Substance: ESOMEPRAZOLE MAGNESIUM

REACTIONS (3)
  - Retinal detachment [Unknown]
  - Urinary tract infection [Unknown]
  - Visual impairment [Unknown]

NARRATIVE: CASE EVENT DATE: 20201005
